FAERS Safety Report 19313883 (Version 1)
Quarter: 2021Q2

REPORT INFORMATION
  Report Type: Report from Study
  Country: US (occurrence: US)
  Receive Date: 20210527
  Receipt Date: 20210527
  Transmission Date: 20210717
  Serious: Yes (Hospitalization)
  Sender: FDA-Public Use
  Company Number: US-MYLANLABS-2021M1030568

PATIENT
  Age: 28 Year
  Sex: Male

DRUGS (1)
  1. BUPROPION. [Suspect]
     Active Substance: BUPROPION
     Indication: PRODUCT USED FOR UNKNOWN INDICATION
     Dosage: INJECTED 3 SYRINGES
     Route: 042

REACTIONS (5)
  - Intentional product misuse [Unknown]
  - Seizure [Unknown]
  - Tachycardia [Unknown]
  - Tremor [Unknown]
  - Joint dislocation [Unknown]
